FAERS Safety Report 12818822 (Version 1)
Quarter: 2016Q4

REPORT INFORMATION
  Report Type: Spontaneous
  Country: US (occurrence: US)
  Receive Date: 20161006
  Receipt Date: 20161006
  Transmission Date: 20170207
  Serious: No
  Sender: FDA-Public Use
  Company Number: US-JNJFOC-20160804189

PATIENT
  Age: 72 Year
  Sex: Female
  Weight: 81.65 kg

DRUGS (4)
  1. ZYRTEC-D [Suspect]
     Active Substance: CETIRIZINE HYDROCHLORIDE\PSEUDOEPHEDRINE HYDROCHLORIDE
     Indication: ALLERGIC RESPIRATORY DISEASE
     Route: 048
     Dates: start: 20160724
  2. ZYRTEC-D [Suspect]
     Active Substance: CETIRIZINE HYDROCHLORIDE\PSEUDOEPHEDRINE HYDROCHLORIDE
     Indication: ALLERGIC RESPIRATORY DISEASE
     Route: 048
     Dates: start: 20160801, end: 20160802
  3. ZYRTEC-D [Suspect]
     Active Substance: CETIRIZINE HYDROCHLORIDE\PSEUDOEPHEDRINE HYDROCHLORIDE
     Indication: EAR DISCOMFORT
     Route: 048
     Dates: start: 20160801, end: 20160802
  4. ZYRTEC-D [Suspect]
     Active Substance: CETIRIZINE HYDROCHLORIDE\PSEUDOEPHEDRINE HYDROCHLORIDE
     Indication: EAR DISCOMFORT
     Route: 048
     Dates: start: 20160724

REACTIONS (5)
  - Swollen tongue [Recovered/Resolved]
  - Product use issue [Recovered/Resolved]
  - Paraesthesia oral [Recovered/Resolved]
  - Off label use [Recovered/Resolved]
  - Dizziness [Recovered/Resolved]

NARRATIVE: CASE EVENT DATE: 201607
